FAERS Safety Report 7608761-5 (Version None)
Quarter: 2011Q3

REPORT INFORMATION
  Report Type: 
  Country: None (occurrence: None)
  Receive Date: 20110714
  Receipt Date: 20110714
  Transmission Date: 20111222
  Serious: Yes (Disabling, Other)
  Sender: FDA-Public Use
  Company Number: None

PATIENT
  Age: 23 Year
  Sex: Male
  Weight: 90.718 kg

DRUGS (1)
  1. FINASTERIDE [Suspect]
     Indication: ANDROGENETIC ALOPECIA
     Dosage: 1MG
     Route: 048
     Dates: start: 20040101, end: 20050101

REACTIONS (7)
  - SEXUAL DYSFUNCTION [None]
  - LOSS OF LIBIDO [None]
  - TESTICULAR ATROPHY [None]
  - TESTICULAR PAIN [None]
  - ERECTILE DYSFUNCTION [None]
  - PENILE SIZE REDUCED [None]
  - EJACULATION FAILURE [None]
